FAERS Safety Report 11943762 (Version 1)
Quarter: 2016Q1

REPORT INFORMATION
  Report Type: Spontaneous
  Country: US (occurrence: US)
  Receive Date: 20160125
  Receipt Date: 20160125
  Transmission Date: 20160526
  Serious: No
  Sender: FDA-Public Use
  Company Number: US-UNITED THERAPEUTICS-UNT-2015-013610

PATIENT
  Age: 64 Year
  Sex: Female
  Weight: 84.99 kg

DRUGS (2)
  1. REMODULIN [Suspect]
     Active Substance: TREPROSTINIL
     Dosage: 0.021 ?G/KG/MIN, CONTINUING
     Route: 058
  2. REMODULIN [Suspect]
     Active Substance: TREPROSTINIL
     Indication: PULMONARY ARTERIAL HYPERTENSION
     Dosage: 0.011 ?G/KG/MIN, CONTINUING
     Route: 058
     Dates: start: 20151023

REACTIONS (6)
  - Fatigue [Unknown]
  - Infusion site pain [Unknown]
  - Hypotension [Unknown]
  - Headache [Unknown]
  - Cough [Unknown]
  - Thrombosis in device [Unknown]

NARRATIVE: CASE EVENT DATE: 201510
